FAERS Safety Report 21331213 (Version 2)
Quarter: 2022Q4

REPORT INFORMATION
  Report Type: Report from Study
  Country: CO (occurrence: CO)
  Receive Date: 20220914
  Receipt Date: 20221109
  Transmission Date: 20230112
  Serious: Yes (Hospitalization, Other)
  Sender: FDA-Public Use
  Company Number: CO-BRISTOL-MYERS SQUIBB COMPANY-2022-104357

PATIENT
  Age: 66 Year
  Sex: Female
  Weight: 62 kg

DRUGS (2)
  1. ORENCIA [Suspect]
     Active Substance: ABATACEPT
     Indication: Rheumatoid arthritis
     Dosage: 125 MG/ML: FREQUENCY: EACH 7 DAYS
     Route: 058
     Dates: start: 20160901
  2. ORENCIA [Suspect]
     Active Substance: ABATACEPT
     Dosage: 125 MG/ML: FREQUENCY: EVERY 7 DAYS
     Route: 058
     Dates: start: 20161001, end: 20220903

REACTIONS (4)
  - Hepatic steatosis [Unknown]
  - Hepatic cirrhosis [Unknown]
  - Arthralgia [Unknown]
  - Pain in extremity [Unknown]

NARRATIVE: CASE EVENT DATE: 20221016
